FAERS Safety Report 10592675 (Version 1)
Quarter: 2014Q4

REPORT INFORMATION
  Report Type: Spontaneous
  Country: US (occurrence: US)
  Receive Date: 20141119
  Receipt Date: 20141119
  Transmission Date: 20150529
  Serious: Yes (Hospitalization)
  Sender: FDA-Public Use
  Company Number: US-GE HEALTHCARE MEDICAL DIAGNOSTICS-VISP-PR-1411S-0492

PATIENT
  Age: 83 Year
  Sex: Female

DRUGS (2)
  1. VISIPAQUE [Suspect]
     Active Substance: IODIXANOL
     Indication: LYMPHADENOPATHY
     Route: 042
     Dates: start: 20141006, end: 20141006
  2. VISIPAQUE [Suspect]
     Active Substance: IODIXANOL
     Indication: DIAGNOSTIC PROCEDURE

REACTIONS (6)
  - Aphonia [Recovered/Resolved]
  - Cough [Recovered/Resolved]
  - Cardiac disorder [Unknown]
  - Nasal congestion [Recovered/Resolved]
  - Ocular hyperaemia [Recovered/Resolved]
  - Pharyngeal hypoaesthesia [Recovered/Resolved]

NARRATIVE: CASE EVENT DATE: 201410
